FAERS Safety Report 18175690 (Version 3)
Quarter: 2020Q4

REPORT INFORMATION
  Report Type: Other
  Country: US (occurrence: US)
  Receive Date: 20200820
  Receipt Date: 20201023
  Transmission Date: 20210113
  Serious: Yes (Other)
  Sender: FDA-Public Use
  Company Number: US-ACORDA-ACO_165638_2020

PATIENT
  Sex: Female

DRUGS (4)
  1. OTHER THERAPEUTIC PRODUCTS [Concomitant]
     Active Substance: UNSPECIFIED INGREDIENT
     Indication: EYE SWELLING
     Dosage: UNK
     Route: 065
  2. CARBIDOPA AND LEVODOPA [Concomitant]
     Active Substance: CARBIDOPA\LEVODOPA
     Indication: PRODUCT USED FOR UNKNOWN INDICATION
     Dosage: 25/100 MG 1 PILL TID
     Route: 065
  3. INBRIJA [Suspect]
     Active Substance: LEVODOPA
     Indication: PARKINSON^S DISEASE
     Dosage: 84 MILLIGRAM, PRN, NOT TO EXCEED 5 DOSES A DAY (NOT STARTED YET)
     Dates: start: 202007
  4. INBRIJA [Suspect]
     Active Substance: LEVODOPA
     Indication: ON AND OFF PHENOMENON

REACTIONS (18)
  - Device difficult to use [Unknown]
  - Freezing phenomenon [Unknown]
  - Insomnia [Unknown]
  - Drug titration [Unknown]
  - Illness [Unknown]
  - Anxiety [Unknown]
  - Memory impairment [Unknown]
  - Hallucination [Not Recovered/Not Resolved]
  - Corneal transplant [Unknown]
  - Cough [Unknown]
  - Fine motor skill dysfunction [Unknown]
  - Agitation [Unknown]
  - Therapeutic response unexpected [Unknown]
  - Drug ineffective [Unknown]
  - Cystitis [Unknown]
  - Abscess [Unknown]
  - Ill-defined disorder [Unknown]
  - Fatigue [Unknown]
